FAERS Safety Report 4724888-X (Version None)
Quarter: 2005Q3

REPORT INFORMATION
  Report Type: 
  Country: None (occurrence: None)
  Receive Date: 20050720
  Receipt Date: 20050720
  Transmission Date: 20060218
  Serious: Yes (Disabling)
  Sender: FDA-Public Use
  Company Number: None

PATIENT
  Age: 27 Year
  Sex: Female
  Weight: 70.3075 kg

DRUGS (4)
  1. LUPRON DEPOT [Suspect]
     Indication: ENDOMETRIOSIS
     Dosage: 1 MONTHLY INTRAMUSCULAR
     Route: 030
     Dates: start: 20050515, end: 20050614
  2. HYDROCODONE BITARTRATE [Concomitant]
  3. FLEXERIL [Concomitant]
  4. IBUPROFEN [Concomitant]

REACTIONS (2)
  - MOBILITY DECREASED [None]
  - PAIN [None]
